FAERS Safety Report 9775102 (Version 3)
Quarter: 2014Q2

REPORT INFORMATION
  Report Type: Spontaneous
  Country: US (occurrence: US)
  Receive Date: 20131220
  Receipt Date: 20140414
  Transmission Date: 20141212
  Serious: Yes (Hospitalization)
  Sender: FDA-Public Use
  Company Number: US-BAYER-2013-154472

PATIENT
  Age: 42 Year
  Sex: Female
  Weight: 87.08 kg

DRUGS (3)
  1. MIRENA [Suspect]
     Indication: CONTRACEPTION
     Dosage: 20 MCG/24HR, CONT
     Route: 015
     Dates: start: 20070112, end: 20120216
  2. MULTIVITAMIN [Concomitant]
     Dosage: DAILY
     Route: 048
     Dates: end: 20120216
  3. PHENTERMINE [Concomitant]
     Dosage: 37.5 MG DAILY
     Route: 048
     Dates: end: 20120216

REACTIONS (7)
  - Device expulsion [None]
  - Medical device discomfort [None]
  - Medical device pain [None]
  - Injury [None]
  - Device misuse [None]
  - Device dislocation [None]
  - Device difficult to use [None]
